FAERS Safety Report 17734592 (Version 2)
Quarter: 2020Q2

REPORT INFORMATION
  Report Type: Other
  Country: GB (occurrence: GB)
  Receive Date: 20200501
  Receipt Date: 20200630
  Transmission Date: 20200714
  Serious: Yes (Hospitalization, Other)
  Sender: FDA-Public Use
  Company Number: GB-VITRUVIAS THERAPEUTICS-2083423

PATIENT
  Age: 35 Year
  Sex: Female
  Weight: 56 kg

DRUGS (5)
  1. LIDOCAINE 4% [Suspect]
     Active Substance: LIDOCAINE
     Route: 055
  2. LIDOCAINE 10% SPRAY [Suspect]
     Active Substance: LIDOCAINE
     Route: 049
  3. LIDOCAINE. [Suspect]
     Active Substance: LIDOCAINE
  4. LIDOCAINE 4% [Suspect]
     Active Substance: LIDOCAINE
  5. CO-PHENYLCAINE NOSE SPRAY [Suspect]
     Active Substance: LIDOCAINE HYDROCHLORIDE\PHENYLEPHRINE HYDROCHLORIDE
     Route: 045

REACTIONS (1)
  - Local anaesthetic systemic toxicity [Recovered/Resolved]
